FAERS Safety Report 10044505 (Version 1)
Quarter: 2014Q1

REPORT INFORMATION
  Report Type: Spontaneous
  Country: US (occurrence: US)
  Receive Date: 20140328
  Receipt Date: 20140328
  Transmission Date: 20141002
  Serious: No
  Sender: FDA-Public Use
  Company Number: US-PFIZER INC-2014089062

PATIENT
  Age: 47 Year
  Sex: Female
  Weight: 68.03 kg

DRUGS (3)
  1. ATORVASTATIN CALCIUM [Suspect]
     Dosage: 10 MG, DAILY
  2. ATORVASTATIN CALCIUM [Suspect]
     Dosage: 20 MG, DAILY
  3. LISINOPRIL [Suspect]
     Indication: BLOOD CHOLESTEROL INCREASED
     Dosage: 10 MG, DAILY
     Dates: start: 201401

REACTIONS (5)
  - Gastric disorder [Recovering/Resolving]
  - Malaise [Recovering/Resolving]
  - Diarrhoea [Recovering/Resolving]
  - Chest pain [Unknown]
  - Off label use [Unknown]
